FAERS Safety Report 10726605 (Version 1)
Quarter: 2015Q1

REPORT INFORMATION
  Report Type: Spontaneous
  Country: US (occurrence: US)
  Receive Date: 20150121
  Receipt Date: 20150121
  Transmission Date: 20150721
  Serious: No
  Sender: FDA-Public Use
  Company Number: US-009507513-1501USA005804

PATIENT
  Age: 30 Year
  Sex: Female
  Weight: 74.83 kg

DRUGS (2)
  1. NUVARING [Suspect]
     Active Substance: ETHINYL ESTRADIOL\ETONOGESTREL
     Indication: CONTRACEPTION
     Dosage: 3 WEEKS IN, 1 WEEK OUT
     Route: 067
     Dates: start: 201412
  2. VITAMIN D [Concomitant]
     Active Substance: CHOLECALCIFEROL
     Dosage: UNK

REACTIONS (4)
  - Medical device discomfort [Recovered/Resolved]
  - Muscle spasms [Not Recovered/Not Resolved]
  - Headache [Unknown]
  - Vaginal discharge [Recovered/Resolved]

NARRATIVE: CASE EVENT DATE: 201412
